FAERS Safety Report 9889126 (Version 1)
Quarter: 2014Q1

REPORT INFORMATION
  Report Type: Report from Study
  Country: ES (occurrence: ES)
  Receive Date: 20140211
  Receipt Date: 20140211
  Transmission Date: 20141002
  Serious: Yes (Other)
  Sender: FDA-Public Use
  Company Number: ES-B.I. PHARMACEUTICALS,INC./RIDGEFIELD-2014-BI-05048GD

PATIENT
  Age: 56 Year
  Sex: Male

DRUGS (4)
  1. PRAMIPEXOLE [Suspect]
     Indication: PARKINSON^S DISEASE
     Route: 048
  2. L-DOPA [Suspect]
     Indication: PARKINSON^S DISEASE
     Dosage: 1550 MG
     Route: 048
  3. RASAGILINE [Suspect]
     Indication: PARKINSON^S DISEASE
     Route: 048
  4. CLONAZEPAM [Concomitant]
     Indication: PRODUCT USED FOR UNKNOWN INDICATION

REACTIONS (4)
  - Pathological gambling [Recovered/Resolved]
  - Hypersexuality [Recovered/Resolved]
  - Binge eating [Not Recovered/Not Resolved]
  - Dopamine dysregulation syndrome [Recovered/Resolved]
